FAERS Safety Report 15601518 (Version 4)
Quarter: 2019Q3

REPORT INFORMATION
  Report Type: Spontaneous
  Country: US (occurrence: US)
  Receive Date: 20181109
  Receipt Date: 20190927
  Transmission Date: 20191004
  Serious: No
  Sender: FDA-Public Use
  Company Number: US-PFIZER INC-2018457233

PATIENT
  Age: 69 Year
  Sex: Female
  Weight: 85.71 kg

DRUGS (1)
  1. IBRANCE [Suspect]
     Active Substance: PALBOCICLIB
     Indication: BREAST CANCER METASTATIC
     Dosage: 100 MG, CYCLIC [DAY 1-21 Q 28 DAYS]
     Route: 048
     Dates: start: 20161216

REACTIONS (7)
  - Nasopharyngitis [Unknown]
  - Fatigue [Unknown]
  - Seasonal allergy [Unknown]
  - Asthma [Unknown]
  - Stomatitis [Not Recovered/Not Resolved]
  - Full blood count decreased [Unknown]
  - Nausea [Unknown]
